FAERS Safety Report 6729015-5 (Version None)
Quarter: 2010Q2

REPORT INFORMATION
  Report Type: 
  Country: None (occurrence: None)
  Receive Date: 20100517
  Receipt Date: 20100331
  Transmission Date: 20101027
  Serious: No
  Sender: FDA-Public Use
  Company Number: US-ABBOTT-10P-163-0635649-00

PATIENT
  Sex: Male

DRUGS (4)
  1. SIMCOR [Suspect]
     Indication: BLOOD CHOLESTEROL INCREASED
     Route: 048
     Dates: start: 20100215, end: 20100301
  2. SIMCOR [Suspect]
     Route: 048
     Dates: start: 20100322
  3. ASPIRIN [Concomitant]
     Indication: DRUG USE FOR UNKNOWN INDICATION
     Route: 048
  4. 5 UNKNOWN MEDICATIONS [Concomitant]
     Indication: DRUG USE FOR UNKNOWN INDICATION

REACTIONS (3)
  - BACK PAIN [None]
  - CONSTIPATION [None]
  - FLUSHING [None]
